FAERS Safety Report 5416902-3 (Version None)
Quarter: 2007Q3

REPORT INFORMATION
  Report Type: 
  Country: None (occurrence: None)
  Receive Date: 20070718
  Receipt Date: 20060901
  Transmission Date: 20080115
  Serious: Yes (Hospitalization, Other)
  Sender: FDA-Public Use
  Company Number: 2006057885

PATIENT
  Age: 65 Year
  Sex: Male
  Weight: 84.8226 kg

DRUGS (7)
  1. CELEBREX [Suspect]
     Indication: ARTHRALGIA
     Dosage: (1 IN 1 D)
     Dates: start: 19991014, end: 20030901
  2. CELEBREX [Suspect]
     Indication: ARTHRITIS
     Dosage: (1 IN 1 D)
     Dates: start: 19991014, end: 20030901
  3. VIAGRA [Concomitant]
  4. ZOCOR [Concomitant]
  5. HYZAAR [Concomitant]
  6. ACETYLSALICYLIC ACID SRT [Concomitant]
  7. MULTIVITAMIN [Concomitant]

REACTIONS (1)
  - ACUTE MYOCARDIAL INFARCTION [None]
